FAERS Safety Report 7235110-7 (Version None)
Quarter: 2011Q1

REPORT INFORMATION
  Report Type: 
  Country: None (occurrence: None)
  Receive Date: 20110120
  Receipt Date: 20110110
  Transmission Date: 20110831
  Serious: No
  Sender: FDA-Public Use
  Company Number: US-B.I. PHARMACEUTICALS,INC./RIDGEFIELD-2011-BP-01049BP

PATIENT
  Sex: Male

DRUGS (9)
  1. PRADAXA [Suspect]
     Indication: ATRIAL FIBRILLATION
     Dosage: 300 MG
     Route: 048
     Dates: start: 20101220
  2. TEKTURNA [Concomitant]
     Indication: HYPERTENSION
  3. TRILIPIX [Concomitant]
     Indication: BLOOD CHOLESTEROL INCREASED
  4. DILTIAZEM [Concomitant]
     Indication: HYPERTENSION
  5. QUINAPRIL [Concomitant]
     Indication: HYPERTENSION
  6. COREG [Concomitant]
     Indication: HYPERTENSION
  7. TRILIPIX [Concomitant]
     Indication: BLOOD TRIGLYCERIDES INCREASED
  8. MULTAQ [Concomitant]
     Indication: ATRIAL FIBRILLATION
  9. CRESTOR [Concomitant]
     Indication: BLOOD CHOLESTEROL INCREASED

REACTIONS (3)
  - PRURITUS [None]
  - RASH PAPULAR [None]
  - PRURITUS GENERALISED [None]
